FAERS Safety Report 19328907 (Version 2)
Quarter: 2021Q4

REPORT INFORMATION
  Report Type: Spontaneous
  Country: US (occurrence: US)
  Receive Date: 20210529
  Receipt Date: 20211229
  Transmission Date: 20220303
  Serious: Yes (Other)
  Sender: FDA-Public Use
  Company Number: US-PURDUE-USA-2020-0212309

PATIENT
  Sex: Female

DRUGS (11)
  1. OXYCONTIN [Suspect]
     Active Substance: OXYCODONE HYDROCHLORIDE
     Indication: Back pain
     Dosage: UNK
     Route: 048
  2. OXYCODONE HYDROCHLORIDE [Suspect]
     Active Substance: OXYCODONE HYDROCHLORIDE
     Indication: Back pain
     Dosage: UNK
     Route: 048
  3. OXYCODONE HYDROCHLORIDE [Suspect]
     Active Substance: OXYCODONE HYDROCHLORIDE
     Indication: Back pain
     Dosage: UNK
     Route: 048
  4. BUTRANS [Suspect]
     Active Substance: BUPRENORPHINE
     Indication: Back pain
     Dosage: UNK
     Route: 062
  5. DILAUDID [Suspect]
     Active Substance: HYDROMORPHONE HYDROCHLORIDE
     Indication: Back pain
     Dosage: UNK
     Route: 048
  6. MS CONTIN [Suspect]
     Active Substance: MORPHINE SULFATE
     Indication: Back pain
     Dosage: UNK
     Route: 048
  7. RYZOLT [Suspect]
     Active Substance: TRAMADOL HYDROCHLORIDE
     Indication: Back pain
     Dosage: UNK
     Route: 048
  8. BUPRENORPHINE [Suspect]
     Active Substance: BUPRENORPHINE
     Indication: Back pain
     Dosage: UNK
     Route: 062
  9. ACETAMINOPHEN\OXYCODONE HYDROCHLORIDE [Suspect]
     Active Substance: ACETAMINOPHEN\OXYCODONE HYDROCHLORIDE
     Indication: Back pain
     Dosage: UNK
     Route: 048
  10. HYDROMORPHONE [Suspect]
     Active Substance: HYDROMORPHONE
     Indication: Back pain
     Dosage: UNK
     Route: 048
  11. MORPHINE SULFATE [Suspect]
     Active Substance: MORPHINE SULFATE
     Indication: Back pain
     Dosage: UNK
     Route: 048

REACTIONS (3)
  - Drug dependence [Unknown]
  - Amnesia [Unknown]
  - Loss of personal independence in daily activities [Unknown]

NARRATIVE: CASE EVENT DATE: 19900101
